FAERS Safety Report 15387129 (Version 2)
Quarter: 2018Q4

REPORT INFORMATION
  Report Type: Report from Study
  Country: BR (occurrence: BR)
  Receive Date: 20180914
  Receipt Date: 20181119
  Transmission Date: 20190204
  Serious: Yes (Hospitalization, Other)
  Sender: FDA-Public Use
  Company Number: BR-SAKK-2018SA255242AA

PATIENT
  Sex: Male
  Weight: 95 kg

DRUGS (2)
  1. INSULIN GLARGINE [Suspect]
     Active Substance: INSULIN GLARGINE
     Dosage: 10 IU, QD
     Route: 058
  2. INSULIN GLARGINE [Suspect]
     Active Substance: INSULIN GLARGINE
     Indication: TYPE 2 DIABETES MELLITUS
     Dosage: 21 IU, QD
     Route: 058
     Dates: start: 20180710

REACTIONS (6)
  - Decreased appetite [Unknown]
  - Cardiac arrest [Unknown]
  - Hospitalisation [Unknown]
  - Loss of consciousness [Unknown]
  - Apparent death [Unknown]
  - Malaise [Unknown]
